FAERS Safety Report 9298037 (Version 1)
Quarter: 2012Q4

REPORT INFORMATION
  Report Type: Spontaneous
  Country: US (occurrence: None)
  Receive Date: 20120914
  Receipt Date: 20120914
  Transmission Date: 20130627
  Serious: Yes (Hospitalization, Other)
  Sender: FDA-Public Use
  Company Number: ACO_30984_2012

PATIENT
  Age: 65 Year
  Sex: Female
  Weight: 77.1 kg

DRUGS (7)
  1. AMPYRA (DALFAMPRIDINE) TABLET, 10MG [Suspect]
     Indication: GAIT DISTURBANCE
     Dates: start: 20110607
  2. TYSABRI (NATALIZUMAB) [Suspect]
     Indication: DRUG USE FOR UNKNOWN INDICATION
  3. AVONEX (INTERFERON BETA-1A) [Concomitant]
  4. AMANTADINE (AMANTADINE) [Concomitant]
  5. LISINOPRIL (LISINOPRIL) [Concomitant]
  6. COLESTIPOL (COLESTIPOL) [Concomitant]
  7. BETASERON (ALBUMIN HUMAN, GLUCOSE, INTERFERON BETA) [Concomitant]

REACTIONS (5)
  - Leukopenia [None]
  - Fall [None]
  - Trigeminal neuralgia [None]
  - JC virus test positive [None]
  - Multiple sclerosis [None]
